FAERS Safety Report 9138597 (Version 2)
Quarter: 2013Q2

REPORT INFORMATION
  Report Type: Spontaneous
  Country: DE (occurrence: DE)
  Receive Date: 20130305
  Receipt Date: 20130506
  Transmission Date: 20140414
  Serious: Yes (Disabling, Other)
  Sender: FDA-Public Use
  Company Number: DE-BAYER-2013-027168

PATIENT
  Age: 49 Year
  Sex: Female

DRUGS (1)
  1. BETAFERON [Suspect]
     Indication: MULTIPLE SCLEROSIS
     Dosage: UNK

REACTIONS (7)
  - Retinal haemorrhage [None]
  - Retinal detachment [None]
  - Blindness unilateral [None]
  - Eye haemorrhage [None]
  - Intraocular melanoma [None]
  - Eye disorder [None]
  - Intraocular pressure increased [None]
